FAERS Safety Report 17043878 (Version 3)
Quarter: 2020Q1

REPORT INFORMATION
  Report Type: Spontaneous
  Country: US (occurrence: US)
  Receive Date: 20191118
  Receipt Date: 20200228
  Transmission Date: 20200409
  Serious: Yes (Other)
  Sender: FDA-Public Use
  Company Number: US-PFIZER INC-2017230029

PATIENT
  Age: 6 Year
  Sex: Male
  Weight: 13.6 kg

DRUGS (1)
  1. BENEFIX [Suspect]
     Active Substance: COAGULATION FACTOR IX RECOMBINANT HUMAN\ISOPROPYL ALCOHOL
     Indication: COAGULATION FACTOR IX LEVEL DECREASED
     Dosage: 1800 IU, MONTHLY

REACTIONS (1)
  - Haemorrhage [Unknown]
